FAERS Safety Report 21556766 (Version 1)
Quarter: 2022Q4

REPORT INFORMATION
  Report Type: Spontaneous
  Country: US (occurrence: None)
  Receive Date: 20221104
  Receipt Date: 20221104
  Transmission Date: 20230113
  Serious: Yes (Hospitalization)
  Sender: FDA-Public Use
  Company Number: None

PATIENT
  Age: 36 Year
  Sex: Male
  Weight: 95.5 kg

DRUGS (3)
  1. CEFEPIME [Suspect]
     Active Substance: CEFEPIME HYDROCHLORIDE
     Indication: Osteomyelitis
     Dosage: FREQUENCY : TWICE A DAY;?
     Route: 042
     Dates: start: 20221016, end: 20221029
  2. CEFEPIME [Suspect]
     Active Substance: CEFEPIME HYDROCHLORIDE
     Indication: Pseudomonas infection
  3. DALBAVANCIN [Concomitant]
     Active Substance: DALBAVANCIN
     Dates: start: 20221016

REACTIONS (3)
  - Cross sensitivity reaction [None]
  - Type III immune complex mediated reaction [None]
  - Drug hypersensitivity [None]

NARRATIVE: CASE EVENT DATE: 20221029
